FAERS Safety Report 6132845-4 (Version None)
Quarter: 2009Q1

REPORT INFORMATION
  Report Type: 
  Country: None (occurrence: None)
  Receive Date: 20090324
  Receipt Date: 20090324
  Transmission Date: 20090719
  Serious: Yes (Hospitalization)
  Sender: FDA-Public Use
  Company Number: None

PATIENT
  Age: 75 Year
  Sex: Male
  Weight: 81.65 kg

DRUGS (1)
  1. ADALIMUMAB [Suspect]
     Indication: PSORIASIS
     Dosage: 40 MG QWEEK
     Dates: start: 20081002, end: 20081030

REACTIONS (1)
  - THROMBOCYTOPENIA [None]
